FAERS Safety Report 7206124-8 (Version None)
Quarter: 2011Q1

REPORT INFORMATION
  Report Type: 
  Country: None (occurrence: None)
  Receive Date: 20110103
  Receipt Date: 20101224
  Transmission Date: 20110831
  Serious: Yes (Hospitalization)
  Sender: FDA-Public Use
  Company Number: JP-ASTELLAS-2010JP007618

PATIENT
  Sex: Female

DRUGS (3)
  1. PROGRAF [Suspect]
     Dosage: 1 MG, UNKNOWN/D
     Route: 048
     Dates: start: 20101224
  2. PROGRAF [Suspect]
     Indication: RHEUMATOID ARTHRITIS
     Dosage: 1 MG, UNKNOWN/D
     Route: 048
     Dates: end: 20101222
  3. METHOTREXATE [Concomitant]
     Route: 065

REACTIONS (1)
  - DUODENAL ULCER [None]
